FAERS Safety Report 9750494 (Version 1)
Quarter: 2013Q4

REPORT INFORMATION
  Report Type: Spontaneous
  Country: US (occurrence: US)
  Receive Date: 20131212
  Receipt Date: 20131212
  Transmission Date: 20140711
  Serious: Yes (Other)
  Sender: FDA-Public Use
  Company Number: US-TEVA-398111USA

PATIENT
  Age: 36 Year
  Sex: Female
  Weight: 62 kg

DRUGS (3)
  1. PARAGARD 380A [Suspect]
     Indication: CONTRACEPTION
     Route: 015
     Dates: start: 20130328
  2. LEVOTHYROXINE [Concomitant]
  3. ZOLOFT [Concomitant]
     Indication: POST-TRAUMATIC STRESS DISORDER

REACTIONS (4)
  - Vaginal haemorrhage [Recovered/Resolved]
  - Metrorrhagia [Recovered/Resolved]
  - Abdominal pain upper [Not Recovered/Not Resolved]
  - Pelvic pain [Not Recovered/Not Resolved]
